FAERS Safety Report 7309943-2 (Version None)
Quarter: 2011Q1

REPORT INFORMATION
  Report Type: 
  Country: None (occurrence: None)
  Receive Date: 20110210
  Receipt Date: 20110120
  Transmission Date: 20110831
  Serious: Yes (Death)
  Sender: FDA-Public Use
  Company Number: AE11-015-3

PATIENT
  Age: 76 Year
  Sex: Female

DRUGS (9)
  1. ALPRAZOLAM [Suspect]
  2. LEVOTHYROXINE [Suspect]
  3. LORCET (ACETAMINOPHEN/HYDROCODONE) [Suspect]
  4. SIMVASTATIN [Suspect]
  5. AMPHETAMINE [Suspect]
  6. FUROSEMIDE [Suspect]
  7. BETA BLOCKER [Suspect]
  8. PANTOPRAZOLE [Suspect]
  9. METHADONE [Suspect]

REACTIONS (4)
  - CARDIAC ARREST [None]
  - RESPIRATORY ARREST [None]
  - MULTIPLE DRUG OVERDOSE INTENTIONAL [None]
  - COMPLETED SUICIDE [None]
